FAERS Safety Report 6233001-1 (Version None)
Quarter: 2009Q2

REPORT INFORMATION
  Report Type: 
  Country: None (occurrence: None)
  Receive Date: 20090617
  Receipt Date: 20090609
  Transmission Date: 20091009
  Serious: Yes (Other)
  Sender: FDA-Public Use
  Company Number: A0778581A

PATIENT
  Age: 59 Year
  Sex: Female
  Weight: 117 kg

DRUGS (19)
  1. ADVAIR HFA [Suspect]
  2. REBIF [Suspect]
     Indication: MULTIPLE SCLEROSIS
     Dosage: 44MCG THREE TIMES PER WEEK
     Route: 058
     Dates: start: 20041201, end: 20081101
  3. HYDROCHLOROTHIAZIDE [Suspect]
  4. NEURONTIN [Suspect]
  5. TIZANIDINE [Concomitant]
  6. LIPITOR [Concomitant]
  7. BACLOFEN [Concomitant]
  8. LEXAPRO [Concomitant]
  9. CLONIDINE [Concomitant]
  10. OXYBUTYNIN [Concomitant]
  11. CALCIUM [Concomitant]
  12. VITAMINS [Concomitant]
  13. ASPIRIN [Concomitant]
     Dosage: 325MG PER DAY
  14. NASONEX [Concomitant]
     Route: 045
  15. ALBUTEROL [Concomitant]
  16. SINGULAIR [Concomitant]
  17. PRIMIDONE [Concomitant]
  18. RANITIDINE [Concomitant]
  19. LOVAZA [Concomitant]

REACTIONS (2)
  - DIABETES MELLITUS [None]
  - STRESS FRACTURE [None]
